FAERS Safety Report 25138689 (Version 2)
Quarter: 2025Q3

REPORT INFORMATION
  Report Type: Report from Study
  Country: EU (occurrence: EU)
  Receive Date: 20250330
  Receipt Date: 20250730
  Transmission Date: 20251021
  Serious: Yes (Hospitalization, Other)
  Sender: AMGEN
  Company Number: EU-AMGEN-DEUSL2025058328

PATIENT
  Age: 66 Year
  Sex: Female

DRUGS (2)
  1. ADALIMUMAB [Suspect]
     Active Substance: ADALIMUMAB
     Indication: Ankylosing spondylitis
     Dosage: 40 MILLIGRAM, Q2WK
     Route: 065
     Dates: start: 202103
  2. CORTISONE [Concomitant]
     Active Substance: CORTISONE

REACTIONS (4)
  - Neuropathy peripheral [Unknown]
  - Spinal fracture [Unknown]
  - Fall [Unknown]
  - Osteoporosis [Unknown]
